FAERS Safety Report 9207193 (Version 1)
Quarter: 2013Q2

REPORT INFORMATION
  Report Type: Spontaneous
  Country: US (occurrence: US)
  Receive Date: 20130403
  Receipt Date: 20130403
  Transmission Date: 20140414
  Serious: Yes (Other)
  Sender: FDA-Public Use
  Company Number: US-PFIZER INC-2013104064

PATIENT
  Age: 60 Year
  Sex: Female

DRUGS (9)
  1. ATENOLOL [Suspect]
     Dosage: UNK
     Route: 048
  2. CAPRELSA [Suspect]
     Indication: MEDULLARY THYROID CANCER
     Dosage: 300 MG, DAILY
     Route: 048
     Dates: start: 20110327
  3. CAPRELSA [Suspect]
     Dosage: 300 MG, DAILY
     Dates: start: 20110526, end: 20130301
  4. ZESTRIL [Suspect]
     Route: 048
  5. ATENOLOL [Concomitant]
     Dosage: UNK
     Route: 065
  6. LISINOPRIL [Concomitant]
     Route: 065
  7. MULTIVITAMINS [Concomitant]
     Route: 065
  8. CALCIUM WITH VITAMIN D [Concomitant]
     Route: 065
  9. LEVOTHYROXINE SODIUM [Concomitant]
     Route: 065

REACTIONS (4)
  - Polyarteritis nodosa [Recovering/Resolving]
  - Pain in extremity [Unknown]
  - Blood thyroid stimulating hormone decreased [Unknown]
  - Rash [Recovering/Resolving]
